FAERS Safety Report 13394971 (Version 2)
Quarter: 2017Q3

REPORT INFORMATION
  Report Type: Spontaneous
  Country: US (occurrence: US)
  Receive Date: 20170403
  Receipt Date: 20170731
  Transmission Date: 20171127
  Serious: No
  Sender: FDA-Public Use
  Company Number: US-ASTRAZENECA-2017SE31614

PATIENT
  Age: 28884 Day
  Sex: Female
  Weight: 78.9 kg

DRUGS (1)
  1. SYMBICORT [Suspect]
     Active Substance: BUDESONIDE\FORMOTEROL FUMARATE DIHYDRATE
     Indication: ASTHMA
     Dosage: 160/4.5MCG, 2 INHALATIONS TWICE DAILY
     Route: 055
     Dates: start: 201612, end: 2017

REACTIONS (6)
  - Intentional product misuse [Unknown]
  - Wrong technique in device usage process [Unknown]
  - Device malfunction [Unknown]
  - Fatigue [Unknown]
  - Product packaging issue [Unknown]
  - Asthenia [Unknown]

NARRATIVE: CASE EVENT DATE: 20170317
